FAERS Safety Report 19152753 (Version 2)
Quarter: 2021Q2

REPORT INFORMATION
  Report Type: Spontaneous
  Country: US (occurrence: US)
  Receive Date: 20210419
  Receipt Date: 20210420
  Transmission Date: 20210717
  Serious: Yes (Other)
  Sender: FDA-Public Use
  Company Number: US-GLAXOSMITHKLINE-US2021GSK086653

PATIENT
  Sex: Female

DRUGS (2)
  1. ZANTAC [Suspect]
     Active Substance: RANITIDINE HYDROCHLORIDE
     Indication: ALLERGY TO CHEMICALS
     Dosage: 150 MG, WE
     Route: 065
     Dates: start: 200101, end: 201601
  2. ZANTAC [Suspect]
     Active Substance: RANITIDINE HYDROCHLORIDE
     Indication: ALLERGY TO CHEMICALS
     Dosage: 150 MG, WE
     Route: 065
     Dates: start: 200101, end: 201601

REACTIONS (1)
  - Breast cancer [Unknown]
